FAERS Safety Report 17406570 (Version 1)
Quarter: 2020Q1

REPORT INFORMATION
  Report Type: Spontaneous
  Country: US (occurrence: US)
  Receive Date: 20200211
  Receipt Date: 20200211
  Transmission Date: 20200409
  Serious: Yes (Hospitalization, Other)
  Sender: FDA-Public Use
  Company Number: None

PATIENT
  Age: 57 Year
  Sex: Male
  Weight: 83.25 kg

DRUGS (15)
  1. LASIX [Concomitant]
     Active Substance: FUROSEMIDE
  2. SODIUM BICARBONATE. [Concomitant]
     Active Substance: SODIUM BICARBONATE
  3. MULTIVITAMINS [Concomitant]
     Active Substance: VITAMINS
  4. MAGNESIUM [Concomitant]
     Active Substance: MAGNESIUM
  5. IRON [Concomitant]
     Active Substance: IRON
  6. IBUPROFEN. [Concomitant]
     Active Substance: IBUPROFEN
  7. LORAZEPAM. [Concomitant]
     Active Substance: LORAZEPAM
  8. TYLENOL [Concomitant]
     Active Substance: ACETAMINOPHEN
  9. CALCIUM [Concomitant]
     Active Substance: CALCIUM
  10. IRBESARTAN. [Concomitant]
     Active Substance: IRBESARTAN
  11. VITAMIN D [Concomitant]
     Active Substance: VITAMIN D NOS
  12. COREG [Concomitant]
     Active Substance: CARVEDILOL
  13. BUSIPRONE [Concomitant]
  14. KRATOM POWDER [Suspect]
     Active Substance: HERBALS\MITRAGYNINE
     Indication: PAIN
     Dosage: ?          QUANTITY:1.5 TEASPOON(S);?
     Route: 048
  15. KRATOM POWDER [Suspect]
     Active Substance: HERBALS\MITRAGYNINE
     Indication: ROUTINE HEALTH MAINTENANCE
     Dosage: ?          QUANTITY:1.5 TEASPOON(S);?
     Route: 048

REACTIONS (3)
  - Panic attack [None]
  - Anxiety [None]
  - Irritability [None]

NARRATIVE: CASE EVENT DATE: 20200209
